FAERS Safety Report 11167150 (Version 1)
Quarter: 2015Q2

REPORT INFORMATION
  Report Type: Spontaneous
  Country: US (occurrence: None)
  Receive Date: 20150515
  Receipt Date: 20150515
  Transmission Date: 20150821
  Serious: Yes (Hospitalization)
  Sender: FDA-Public Use
  Company Number: 112109

PATIENT
  Age: 50 Year
  Sex: Female
  Weight: 44.5 kg

DRUGS (8)
  1. PREDNISONE (PREDNISONE ACETATE) [Concomitant]
  2. TRAZODONE [Concomitant]
     Active Substance: TRAZODONE HYDROCHLORIDE
  3. FENTANYL PCH (FENTANYL) [Concomitant]
  4. BACLOFEN (BACLOFEN) [Concomitant]
     Active Substance: BACLOFEN
  5. CIMZIA [Suspect]
     Active Substance: CERTOLIZUMAB PEGOL
     Indication: CROHN^S DISEASE
     Dosage: LOT # 1 108974?LOT #2 117133?LOT #3 117552
     Dates: start: 20131030
  6. OXYCODONE [Concomitant]
     Active Substance: OXYCODONE
  7. ADVAIR DISKUS [Concomitant]
     Active Substance: FLUTICASONE PROPIONATE\SALMETEROL XINAFOATE
  8. ALBUTEROL (SALBUTAMOL) [Concomitant]
     Active Substance: ALBUTEROL

REACTIONS (20)
  - Pain [None]
  - Respiratory tract congestion [None]
  - Post procedural discharge [None]
  - Vaginal discharge [None]
  - Abdominal pain [None]
  - Bronchitis [None]
  - Abdominal distension [None]
  - Pneumonia [None]
  - Nasopharyngitis [None]
  - Weight decreased [None]
  - Lung infection [None]
  - Diarrhoea [None]
  - Malaise [None]
  - Drug ineffective [None]
  - Rectal discharge [None]
  - Crohn^s disease [None]
  - Fatigue [None]
  - Gastrointestinal disorder [None]
  - Painful defaecation [None]
  - Appetite disorder [None]

NARRATIVE: CASE EVENT DATE: 20140212
